FAERS Safety Report 26121270 (Version 1)
Quarter: 2025Q4

REPORT INFORMATION
  Report Type: Spontaneous
  Country: GB (occurrence: GB)
  Receive Date: 20251204
  Receipt Date: 20251204
  Transmission Date: 20260118
  Serious: Yes (Other)
  Sender: AMGEN
  Company Number: GB-AMGEN-GBRSP2025236663

PATIENT

DRUGS (1)
  1. USTEKINUMAB [Suspect]
     Active Substance: USTEKINUMAB
     Indication: Crohn^s disease
     Dosage: 90 MILLIGRAM, Q3MO
     Route: 058
     Dates: start: 20250416

REACTIONS (3)
  - Meniere^s disease [Unknown]
  - Sleep disorder [Unknown]
  - Headache [Unknown]
